FAERS Safety Report 5913504-7 (Version None)
Quarter: 2008Q4

REPORT INFORMATION
  Report Type: 
  Country: None (occurrence: None)
  Receive Date: 20081009
  Receipt Date: 20080930
  Transmission Date: 20090506
  Serious: Yes (Hospitalization)
  Sender: FDA-Public Use
  Company Number: GB-AMGEN-US302736

PATIENT
  Sex: Female
  Weight: 84 kg

DRUGS (6)
  1. ENBREL [Suspect]
     Indication: PSORIATIC ARTHROPATHY
     Route: 058
     Dates: start: 20040415, end: 20070901
  2. ENBREL [Suspect]
     Indication: RHEUMATOID ARTHRITIS
     Route: 065
  3. DEPO-PROVERA [Concomitant]
     Route: 065
  4. VIOXX [Concomitant]
     Dosage: UNKNOWN
     Route: 048
  5. DIHYDROCODEINE BITARTRATE INJ [Concomitant]
     Dosage: UNKNOWN
     Route: 065
  6. ORAL CONTRACEPTIVE NOS [Concomitant]
     Dosage: UNKNOWN
     Route: 048

REACTIONS (8)
  - BACK PAIN [None]
  - BLOOD URINE PRESENT [None]
  - C-REACTIVE PROTEIN INCREASED [None]
  - PROTEIN URINE [None]
  - PYELONEPHRITIS [None]
  - PYREXIA [None]
  - STAPHYLOCOCCAL INFECTION [None]
  - WHITE BLOOD CELLS URINE [None]
